FAERS Safety Report 8808703 (Version 1)
Quarter: 2012Q4

REPORT INFORMATION
  Report Type: Spontaneous
  Country: US (occurrence: None)
  Receive Date: 20120921
  Receipt Date: 20120921
  Transmission Date: 20130627
  Serious: Yes (Other)
  Sender: FDA-Public Use
  Company Number: None

PATIENT
  Sex: Male
  Weight: 67.59 kg

DRUGS (9)
  1. LEXAPRO [Suspect]
     Indication: TINNITUS
     Dosage: Lexapro 5mg once daily oral
     Route: 048
     Dates: start: 201203
  2. LIPITOR [Concomitant]
  3. VICTOZA [Concomitant]
  4. METFORMIN [Concomitant]
  5. ATENOLOL [Concomitant]
  6. NORVASC [Concomitant]
  7. ASA [Concomitant]
  8. TEMAZEPAM [Concomitant]
  9. XOLATAN [Concomitant]

REACTIONS (1)
  - Sexual dysfunction [None]
